FAERS Safety Report 11794421 (Version 1)
Quarter: 2015Q4

REPORT INFORMATION
  Report Type: Spontaneous
  Country: US (occurrence: US)
  Receive Date: 20151202
  Receipt Date: 20151202
  Transmission Date: 20160305
  Serious: No
  Sender: FDA-Public Use
  Company Number: ALCN1999US000704

PATIENT
  Age: 79 Year
  Sex: Female
  Weight: 52.17 kg

DRUGS (2)
  1. TEARS NATURALE II POLYQUAD [Suspect]
     Active Substance: DEXTRAN 70\HYPROMELLOSE 2910 (4000 MPA.S)
     Indication: DRY EYE
  2. NAPHCON A [Suspect]
     Active Substance: NAPHAZOLINE HYDROCHLORIDE\PHENIRAMINE MALEATE
     Indication: DRY EYE
     Dosage: OPHT
     Dates: end: 199904

REACTIONS (3)
  - Erythema of eyelid [Recovered/Resolved]
  - Dermatitis [Recovered/Resolved]
  - Ocular discomfort [Recovered/Resolved]
